FAERS Safety Report 6863094-X (Version None)
Quarter: 2010Q2

REPORT INFORMATION
  Report Type: 
  Country: None (occurrence: None)
  Receive Date: 20100528
  Receipt Date: 20100304
  Transmission Date: 20101027
  Serious: No
  Sender: FDA-Public Use
  Company Number: 008310

PATIENT
  Sex: Female
  Weight: 96.3 kg

DRUGS (5)
  1. LACOSAMIDE [Suspect]
     Indication: CONVULSION
     Dosage: (200 MG BID ORAL)
     Route: 048
     Dates: start: 20100201
  2. KEPPRA [Suspect]
     Indication: CONVULSION
     Dosage: (1500 MG BID ORAL)
     Route: 048
  3. CELEXA [Concomitant]
  4. TOPAMAX [Concomitant]
  5. KLONOPIN [Concomitant]

REACTIONS (3)
  - ACNE [None]
  - POLLAKIURIA [None]
  - PRURITUS GENITAL [None]
